FAERS Safety Report 5075402-3 (Version None)
Quarter: 2006Q3

REPORT INFORMATION
  Report Type: 
  Country: None (occurrence: None)
  Receive Date: 20060809
  Receipt Date: 20060724
  Transmission Date: 20061208
  Serious: Yes (Death, Hospitalization)
  Sender: FDA-Public Use
  Company Number: ES-SANOFI-SYNTHELABO-F01200601731

PATIENT
  Sex: Male

DRUGS (2)
  1. FLUOROURACIL [Suspect]
     Dosage: 3000 MG/M2 IN 48 HOURS INFUSION, Q2W
     Route: 042
     Dates: start: 20060714, end: 20060715
  2. OXALIPLATIN [Suspect]
     Indication: COLORECTAL CANCER
     Route: 042
     Dates: start: 20060714, end: 20060714

REACTIONS (2)
  - NEUTROPENIA [None]
  - PNEUMONIA [None]
